FAERS Safety Report 11368692 (Version 2)
Quarter: 2015Q4

REPORT INFORMATION
  Report Type: Spontaneous
  Country: US (occurrence: US)
  Receive Date: 20150812
  Receipt Date: 20151009
  Transmission Date: 20160304
  Serious: Yes (Other)
  Sender: FDA-Public Use
  Company Number: US-009507513-1508USA000082

PATIENT
  Age: 22 Year
  Sex: Female

DRUGS (9)
  1. TEMODAR [Suspect]
     Active Substance: TEMOZOLOMIDE
     Dosage: 260 MG DAILY FOR 5 CONSECUTIVE DAYS PER 28-DAY TREATMENT CYCLE
     Route: 048
     Dates: start: 20140920, end: 20150724
  2. TEGRETOL [Concomitant]
     Active Substance: CARBAMAZEPINE
  3. ZOLOFT [Concomitant]
     Active Substance: SERTRALINE HYDROCHLORIDE
  4. POTASSIUM (UNSPECIFIED) [Concomitant]
     Active Substance: POTASSIUM
  5. KEPPRA [Concomitant]
     Active Substance: LEVETIRACETAM
  6. TEMODAR [Suspect]
     Active Substance: TEMOZOLOMIDE
     Indication: ANAPLASTIC ASTROCYTOMA
     Dosage: LOW DOSE
     Route: 048
     Dates: start: 201405, end: 201408
  7. LORAZEPAM. [Concomitant]
     Active Substance: LORAZEPAM
  8. HEMP [Concomitant]
     Active Substance: HEMP
  9. PEPCID [Concomitant]
     Active Substance: FAMOTIDINE

REACTIONS (2)
  - Rash [Recovered/Resolved]
  - Rash generalised [Recovered/Resolved]

NARRATIVE: CASE EVENT DATE: 20150724
